FAERS Safety Report 4616942-8 (Version None)
Quarter: 2005Q1

REPORT INFORMATION
  Report Type: 
  Country: None (occurrence: None)
  Receive Date: 20050321
  Receipt Date: 20050307
  Transmission Date: 20050727
  Serious: Yes (Death, Hospitalization)
  Sender: FDA-Public Use
  Company Number: 2005044544

PATIENT
  Age: 81 Year
  Sex: Male

DRUGS (9)
  1. LINEZOLID                  (LINEZOLID) [Suspect]
     Indication: OSTEOMYELITIS
     Dosage: 1200 MG (600 MG, BID)
  2. CITALOPRAM [Suspect]
     Indication: ILL-DEFINED DISORDER
     Dosage: 40 MG (20 MG, BID)
  3. PREDNISONE [Concomitant]
  4. METHOTREXATE [Concomitant]
  5. DIGOXIN [Concomitant]
  6. GLYCERYL TRINITRATE (GLYCERIL TRINITRATE) [Concomitant]
  7. DORASEMIDE (TORASEMIDE) [Concomitant]
  8. INSULIN [Concomitant]
  9. OXAZEPAM [Concomitant]

REACTIONS (15)
  - ALANINE AMINOTRANSFERASE INCREASED [None]
  - CARDIAC ARREST [None]
  - CARDIAC VENTRICULAR DISORDER [None]
  - CONFUSIONAL STATE [None]
  - HYPERTENSION [None]
  - LACTIC ACIDOSIS [None]
  - LIVER DISORDER [None]
  - MEDICATION ERROR [None]
  - MENTAL STATUS CHANGES [None]
  - PROCEDURAL COMPLICATION [None]
  - PYREXIA [None]
  - SEROTONIN SYNDROME [None]
  - TACHYCARDIA [None]
  - THROMBOCYTOPENIA [None]
  - TREMOR [None]
